FAERS Safety Report 9923925 (Version 1)
Quarter: 2014Q1

REPORT INFORMATION
  Report Type: Spontaneous
  Country: US (occurrence: US)
  Receive Date: 20140225
  Receipt Date: 20140225
  Transmission Date: 20141002
  Serious: No
  Sender: FDA-Public Use
  Company Number: US-AMGEN-USASP2014006358

PATIENT
  Age: 65 Year
  Sex: Male

DRUGS (1)
  1. ENBREL [Suspect]
     Indication: PSORIASIS
     Dosage: UNK UNK, TWICE A WEEK
     Route: 065
     Dates: start: 20090915, end: 201306

REACTIONS (3)
  - Dry skin [Not Recovered/Not Resolved]
  - Hangnail [Not Recovered/Not Resolved]
  - Psoriasis [Not Recovered/Not Resolved]
